FAERS Safety Report 24621039 (Version 1)
Quarter: 2024Q4

REPORT INFORMATION
  Report Type: Spontaneous
  Country: US (occurrence: None)
  Receive Date: 20241114
  Receipt Date: 20241114
  Transmission Date: 20250115
  Serious: Yes (Other)
  Sender: Public
  Company Number: None

PATIENT
  Age: 55 Year
  Sex: Female
  Weight: 59.85 kg

DRUGS (2)
  1. DUPIXENT [Suspect]
     Active Substance: DUPILUMAB
     Indication: Dermatitis atopic
     Dosage: OTHER FREQUENCY : EVERY 2 WEEKS;?
     Route: 058
     Dates: start: 20220903, end: 20240901
  2. DUPIXENT [Concomitant]
     Active Substance: DUPILUMAB
     Dates: start: 20220927, end: 20240901

REACTIONS (2)
  - Pain in extremity [None]
  - Osteitis [None]

NARRATIVE: CASE EVENT DATE: 20241114
